FAERS Safety Report 11154660 (Version 1)
Quarter: 2015Q2

REPORT INFORMATION
  Report Type: Spontaneous
  Country: US (occurrence: US)
  Receive Date: 20150602
  Receipt Date: 20150602
  Transmission Date: 20150821
  Serious: Yes (Hospitalization, Other)
  Sender: FDA-Public Use
  Company Number: US-UCBSA-2015017419

PATIENT
  Age: 75 Year
  Sex: Female

DRUGS (1)
  1. LEVETIRACETAM. [Suspect]
     Active Substance: LEVETIRACETAM
     Indication: SEIZURE
     Dosage: UNKNOWN DOSE

REACTIONS (5)
  - Ventricular dyskinesia [Recovered/Resolved]
  - Drug dose omission [Unknown]
  - Ventricular tachycardia [Recovered/Resolved]
  - Generalised tonic-clonic seizure [Unknown]
  - Systolic dysfunction [Unknown]
